FAERS Safety Report 17331097 (Version 1)
Quarter: 2020Q1

REPORT INFORMATION
  Report Type: Other
  Country: US (occurrence: US)
  Receive Date: 20200128
  Receipt Date: 20200128
  Transmission Date: 20200409
  Serious: Yes (Other)
  Sender: FDA-Public Use
  Company Number: US-GW PHARMA-202001USGW00259

PATIENT

DRUGS (2)
  1. EPIDIOLEX [Suspect]
     Active Substance: CANNABIDIOL
     Dosage: 520 MILLIGRAM, BID
     Route: 048
     Dates: start: 2019
  2. EPIDIOLEX [Suspect]
     Active Substance: CANNABIDIOL
     Indication: SEIZURE
     Dosage: 270 MILLIGRAM
     Route: 048
     Dates: start: 20190321, end: 2019

REACTIONS (4)
  - Aggression [Unknown]
  - Mood altered [Unknown]
  - Sedation [Unknown]
  - Anger [Unknown]

NARRATIVE: CASE EVENT DATE: 20190401
